FAERS Safety Report 6349285-5 (Version None)
Quarter: 2009Q3

REPORT INFORMATION
  Report Type: 
  Country: None (occurrence: None)
  Receive Date: 20090911
  Receipt Date: 20090908
  Transmission Date: 20100115
  Serious: Yes (Other)
  Sender: FDA-Public Use
  Company Number: A0806788A

PATIENT
  Sex: Male

DRUGS (2)
  1. ARIXTRA [Suspect]
     Indication: DRUG USE FOR UNKNOWN INDICATION
     Dosage: 7.5MG UNKNOWN
     Route: 058
  2. UNKNOWN [Concomitant]

REACTIONS (2)
  - COAGULOPATHY [None]
  - TREATMENT NONCOMPLIANCE [None]
